FAERS Safety Report 13131469 (Version 1)
Quarter: 2017Q1

REPORT INFORMATION
  Report Type: Spontaneous
  Country: US (occurrence: US)
  Receive Date: 20170119
  Receipt Date: 20170119
  Transmission Date: 20170428
  Serious: Yes (Other)
  Sender: FDA-Public Use
  Company Number: US-TEVA-729911USA

PATIENT
  Sex: Female
  Weight: 9.08 kg

DRUGS (8)
  1. CYPROHEPTADINE. [Concomitant]
     Active Substance: CYPROHEPTADINE
     Indication: UPPER-AIRWAY COUGH SYNDROME
  2. IPRATROPIUM BROMIDE. [Concomitant]
     Active Substance: IPRATROPIUM BROMIDE
     Indication: COUGH
  3. MONTELUKAST [Concomitant]
     Active Substance: MONTELUKAST SODIUM
     Indication: COUGH
  4. QVAR [Suspect]
     Active Substance: BECLOMETHASONE DIPROPIONATE
     Indication: COUGH
     Dosage: 80 MICROGRAM DAILY; TWO PUFFS TWICE DAILY
     Route: 065
     Dates: start: 201608
  5. ALBUTEROL. [Concomitant]
     Active Substance: ALBUTEROL
     Indication: COUGH
  6. QVAR [Suspect]
     Active Substance: BECLOMETHASONE DIPROPIONATE
     Indication: UPPER-AIRWAY COUGH SYNDROME
  7. CYPROHEPTADINE. [Concomitant]
     Active Substance: CYPROHEPTADINE
     Indication: APPETITE DISORDER
  8. PRILOSEC [Concomitant]
     Active Substance: OMEPRAZOLE MAGNESIUM
     Indication: GASTROOESOPHAGEAL REFLUX DISEASE

REACTIONS (6)
  - Pancreatic insufficiency [Not Recovered/Not Resolved]
  - Eye disorder [Not Recovered/Not Resolved]
  - Vomiting [Recovered/Resolved]
  - Dysphonia [Not Recovered/Not Resolved]
  - Drug administered to patient of inappropriate age [Unknown]
  - Ocular hyperaemia [Not Recovered/Not Resolved]

NARRATIVE: CASE EVENT DATE: 2016
